FAERS Safety Report 9559826 (Version 2)
Quarter: 2014Q1

REPORT INFORMATION
  Report Type: Spontaneous
  Country: US (occurrence: US)
  Receive Date: 20130927
  Receipt Date: 20140122
  Transmission Date: 20141002
  Serious: Yes (Hospitalization)
  Sender: FDA-Public Use
  Company Number: US-JNJFOC-20130913407

PATIENT
  Age: 62 Year
  Sex: Female
  Weight: 72.58 kg

DRUGS (13)
  1. INVOKANA [Suspect]
     Indication: DIABETES MELLITUS
     Route: 048
     Dates: start: 20130826, end: 20130902
  2. INVOKANA [Suspect]
     Indication: DIABETES MELLITUS
     Route: 048
     Dates: start: 20130805, end: 20130826
  3. INVOKANA [Suspect]
     Indication: DIABETES MELLITUS
     Route: 048
     Dates: start: 20130718, end: 20130805
  4. LISINOPRIL [Concomitant]
     Indication: HYPERTENSION
  5. LEVEMIR [Concomitant]
     Indication: DIABETES MELLITUS
     Dates: end: 20130826
  6. LEVEMIR [Concomitant]
     Indication: DIABETES MELLITUS
     Dates: start: 20130426
  7. NOVOLOG [Concomitant]
     Indication: DIABETES MELLITUS
  8. NEURONTIN [Concomitant]
     Indication: DIABETIC NEUROPATHY
  9. SEROQUEL [Concomitant]
     Indication: DEPRESSION
     Dates: start: 20130120, end: 20131004
  10. NORTRIPTYLINE [Concomitant]
     Indication: INSOMNIA
  11. NORTRIPTYLINE [Concomitant]
     Indication: INSOMNIA
  12. NORTRIPTYLINE [Concomitant]
     Indication: DEPRESSION
  13. NORTRIPTYLINE [Concomitant]
     Indication: DEPRESSION

REACTIONS (3)
  - Urosepsis [Recovered/Resolved]
  - Escherichia infection [Recovered/Resolved]
  - Off label use [Recovered/Resolved]
